FAERS Safety Report 12691935 (Version 1)
Quarter: 2016Q3

REPORT INFORMATION
  Report Type: Spontaneous
  Country: US (occurrence: US)
  Receive Date: 20160827
  Receipt Date: 20160827
  Transmission Date: 20161109
  Serious: No
  Sender: FDA-Public Use
  Company Number: US-AMGEN-USASP2016109041

PATIENT
  Age: 68 Year
  Sex: Female

DRUGS (3)
  1. MUCINEX [Suspect]
     Active Substance: GUAIFENESIN
     Indication: NASAL CONGESTION
  2. ENBREL [Suspect]
     Active Substance: ETANERCEPT
     Indication: RHEUMATOID ARTHRITIS
     Dosage: 50 MG, WEEKLY
     Route: 065
     Dates: start: 20160412
  3. MUCINEX [Suspect]
     Active Substance: GUAIFENESIN
     Indication: WHEEZING
     Dosage: UNK
     Route: 065

REACTIONS (12)
  - Feeling abnormal [Unknown]
  - Wheezing [Unknown]
  - Nasal congestion [Unknown]
  - Chills [Unknown]
  - Malaise [Unknown]
  - Pyrexia [Unknown]
  - Lung disorder [Unknown]
  - Memory impairment [Unknown]
  - Adverse drug reaction [Unknown]
  - Nervousness [Unknown]
  - Dyspnoea [Unknown]
  - Asthenia [Unknown]

NARRATIVE: CASE EVENT DATE: 2016
